FAERS Safety Report 14671528 (Version 2)
Quarter: 2018Q2

REPORT INFORMATION
  Report Type: Spontaneous
  Country: CN (occurrence: CN)
  Receive Date: 20180323
  Receipt Date: 20180616
  Transmission Date: 20180711
  Serious: Yes (Other)
  Sender: FDA-Public Use
  Company Number: CN-ROCHE-2090625

PATIENT
  Age: 54 Year
  Sex: Male

DRUGS (7)
  1. OXALIPLATIN. [Concomitant]
     Active Substance: OXALIPLATIN
     Indication: ADENOCARCINOMA
     Dosage: OXALIPLATIN DOSE 130MG/M^2 ON THE FIRST DAY AND ON THE SECOND DAY OF SECOND CYCLE
     Route: 065
     Dates: start: 20151222
  2. HERCEPTIN [Suspect]
     Active Substance: TRASTUZUMAB
     Dosage: TRASTUZUMAB DOSE 6MG/KG ON THE FIRST DAY OF SECOND CYCLE
     Route: 065
  3. PACLITAXEL. [Concomitant]
     Active Substance: PACLITAXEL
     Indication: ADENOCARCINOMA
     Dosage: PACLITAXEL DOSE 135MG/M^2 ON THE FIRST DAY AND SECOND DAY OF SECOND CYCLE
     Route: 065
     Dates: start: 20151222
  4. XELODA [Suspect]
     Active Substance: CAPECITABINE
     Indication: ADENOCARCINOMA
     Dosage: FROM FIRST DAY TO 14TH DAY, EVERY 21 DAYS
     Route: 048
     Dates: start: 20151222
  5. HERCEPTIN [Suspect]
     Active Substance: TRASTUZUMAB
     Indication: ADENOCARCINOMA
     Dosage: TRASTUZUMAB DOSE 8 MG/KG FOR THE FIRST CYCLE
     Route: 065
     Dates: start: 20160113
  6. XELODA [Suspect]
     Active Substance: CAPECITABINE
     Dosage: FROM THE SECOND DAY TO 15TH DAY, EVERY 21 DAYS
     Route: 048
  7. HERCEPTIN [Suspect]
     Active Substance: TRASTUZUMAB
     Dosage: TRASTUZUMAB DOSE 6MG/KG AFTER OPERATION
     Route: 065

REACTIONS (2)
  - Bone marrow failure [Recovering/Resolving]
  - Gastrointestinal disorder [Recovering/Resolving]

NARRATIVE: CASE EVENT DATE: 20160613
